FAERS Safety Report 12077465 (Version 1)
Quarter: 2016Q1

REPORT INFORMATION
  Report Type: Spontaneous
  Country: US (occurrence: US)
  Receive Date: 20160215
  Receipt Date: 20160215
  Transmission Date: 20160526
  Serious: Yes (Life-Threatening, Hospitalization, Other)
  Sender: FDA-Public Use
  Company Number: US-JNJFOC-20160201103

PATIENT
  Age: 61 Year
  Sex: Male
  Weight: 87.54 kg

DRUGS (8)
  1. LISINOPRIL. [Suspect]
     Active Substance: LISINOPRIL
     Indication: BLOOD PRESSURE MEASUREMENT
     Dosage: 10 MG OR 20 MG
     Route: 065
  2. MOTRIN [Suspect]
     Active Substance: IBUPROFEN
     Indication: SWELLING
     Dosage: 2 TABLETS EVERY 6 HOURS
     Route: 048
     Dates: start: 20151221
  3. ALL OTHER THERAPEUTIC PRODUCTS [Suspect]
     Active Substance: UNSPECIFIED INGREDIENT
     Indication: HYPERSENSITIVITY
     Route: 065
  4. ANXIOLYTICS [Suspect]
     Active Substance: UNSPECIFIED INGREDIENT
     Indication: ANXIETY
     Route: 065
  5. MOTRIN [Suspect]
     Active Substance: IBUPROFEN
     Indication: TOOTH DISORDER
     Dosage: 2 TABLETS EVERY 6 HOURS
     Route: 048
     Dates: start: 20151221
  6. MOTRIN [Suspect]
     Active Substance: IBUPROFEN
     Indication: CONTUSION
     Dosage: 2 TABLETS EVERY 6 HOURS
     Route: 048
     Dates: start: 20151221
  7. MOTRIN [Suspect]
     Active Substance: IBUPROFEN
     Indication: PAIN
     Dosage: 2 TABLETS EVERY 6 HOURS
     Route: 048
     Dates: start: 20151221
  8. QUETIAPINE [Suspect]
     Active Substance: QUETIAPINE
     Indication: BIPOLAR DISORDER
     Route: 065

REACTIONS (15)
  - Balance disorder [Recovered/Resolved]
  - Asthenia [Recovered/Resolved]
  - Drug administration error [Unknown]
  - Fall [Recovered/Resolved]
  - Product label issue [Unknown]
  - Tremor [Unknown]
  - Contusion [Recovering/Resolving]
  - Renal impairment [Recovering/Resolving]
  - Nausea [Unknown]
  - Weight decreased [Recovered/Resolved]
  - Abasia [Recovered/Resolved]
  - Fatigue [Recovered/Resolved]
  - Feeling abnormal [Unknown]
  - Vomiting [Recovered/Resolved]
  - Dehydration [Recovered/Resolved]

NARRATIVE: CASE EVENT DATE: 2015
